FAERS Safety Report 6854820-4 (Version None)
Quarter: 2010Q3

REPORT INFORMATION
  Report Type: 
  Country: None (occurrence: None)
  Receive Date: 20100717
  Receipt Date: 20080226
  Transmission Date: 20110219
  Serious: Yes (Other)
  Sender: FDA-Public Use
  Company Number: US-PFIZER INC-2008001044

PATIENT
  Age: 64 Year
  Sex: Male
  Weight: 74.8 kg

DRUGS (13)
  1. CHANTIX [Suspect]
     Indication: SMOKING CESSATION THERAPY
     Route: 048
     Dates: start: 20071225, end: 20080102
  2. ALBUTEROL [Concomitant]
  3. ALENDRONATE SODIUM [Concomitant]
  4. OMEPRAZOLE [Concomitant]
  5. ASPIRIN [Concomitant]
  6. ATENOLOL [Concomitant]
  7. HYDROCHLOROTHIAZIDE [Concomitant]
  8. LISINOPRIL [Concomitant]
  9. ALL OTHER THERAPEUTIC PRODUCTS [Concomitant]
  10. SIMVASTATIN [Concomitant]
  11. TERAZOSIN HCL [Concomitant]
  12. SPIRIVA [Concomitant]
  13. XANAX [Concomitant]
     Dates: start: 19930101

REACTIONS (4)
  - DYSPNOEA [None]
  - FATIGUE [None]
  - FRUSTRATION [None]
  - SLEEP DISORDER [None]
